FAERS Safety Report 9128822 (Version 1)
Quarter: 2013Q1

REPORT INFORMATION
  Report Type: Report from Study
  Country: CA (occurrence: CA)
  Receive Date: 20130228
  Receipt Date: 20130228
  Transmission Date: 20140127
  Serious: Yes (Other)
  Sender: FDA-Public Use
  Company Number: CA-JNJFOC-20130215784

PATIENT
  Sex: Male
  Weight: 88.3 kg

DRUGS (3)
  1. REMICADE [Suspect]
     Indication: CROHN^S DISEASE
     Dosage: 29TH INFUSION
     Route: 042
     Dates: start: 20121228
  2. REMICADE [Suspect]
     Indication: CROHN^S DISEASE
     Route: 042
     Dates: start: 20090623
  3. IMURAN [Concomitant]
     Route: 048

REACTIONS (1)
  - Ileitis [Recovered/Resolved]
